FAERS Safety Report 22004811 (Version 1)
Quarter: 2023Q1

REPORT INFORMATION
  Report Type: Spontaneous
  Country: CA (occurrence: CA)
  Receive Date: 20230217
  Receipt Date: 20230217
  Transmission Date: 20230418
  Serious: Yes (Other)
  Sender: FDA-Public Use
  Company Number: CA-GLAXOSMITHKLINE-CA2023AMR024067

PATIENT

DRUGS (1)
  1. FLUTICASONE PROPIONATE\SALMETEROL XINAFOATE [Suspect]
     Active Substance: FLUTICASONE PROPIONATE\SALMETEROL XINAFOATE
     Indication: Upper respiratory tract infection
     Dosage: 2 PUFF(S), QD
     Route: 055

REACTIONS (4)
  - Headache [Unknown]
  - Nausea [Unknown]
  - Oropharyngeal pain [Unknown]
  - Stomatitis [Unknown]
